FAERS Safety Report 9394449 (Version 2)
Quarter: 2013Q3

REPORT INFORMATION
  Report Type: Spontaneous
  Country: US (occurrence: US)
  Receive Date: 20130711
  Receipt Date: 20130822
  Transmission Date: 20140515
  Serious: No
  Sender: FDA-Public Use
  Company Number: US-PFIZER INC-2013203709

PATIENT
  Age: 45 Year
  Sex: Female

DRUGS (6)
  1. LYRICA [Suspect]
     Indication: TRIGEMINAL NEURALGIA
     Dosage: 25 MG, 3X/DAY
     Route: 048
     Dates: start: 20130411, end: 2013
  2. LYRICA [Suspect]
     Dosage: 50 MG, UNK
     Route: 048
     Dates: start: 2013, end: 201306
  3. LYRICA [Suspect]
     Dosage: 75 MG, 2X/DAY
     Route: 048
     Dates: start: 201306
  4. TOPAMAX [Concomitant]
     Indication: FIBROMYALGIA
     Dosage: UNK
     Route: 048
  5. CELEXA [Concomitant]
     Indication: HOT FLUSH
     Dosage: 40 MG, 1X/DAY
     Route: 048
  6. CELEXA [Concomitant]
     Indication: ANXIETY

REACTIONS (3)
  - Poor quality drug administered [Unknown]
  - Drug ineffective [Unknown]
  - Product quality issue [Unknown]
